FAERS Safety Report 5327017-7 (Version None)
Quarter: 2007Q2

REPORT INFORMATION
  Report Type: 
  Country: None (occurrence: None)
  Receive Date: 20070220
  Receipt Date: 20061226
  Transmission Date: 20071010
  Serious: No
  Sender: FDA-Public Use
  Company Number: WAES 0612USA04078

PATIENT
  Age: 76 Year
  Sex: Female

DRUGS (11)
  1. JANUVIA [Suspect]
     Indication: DIABETES MELLITUS
     Dosage: PO
     Route: 048
     Dates: start: 20061224
  2. NORVASC [Suspect]
     Dates: start: 20061210
  3. ACTONEL [Concomitant]
  4. COZAAR [Concomitant]
  5. HYZAAR [Concomitant]
  6. LIPITOR [Concomitant]
  7. MINITRAN [Concomitant]
  8. PLAVIX [Concomitant]
  9. ZETIA [Concomitant]
  10. INSULIN [Concomitant]
  11. METOPROLOL TARTRATE [Concomitant]

REACTIONS (2)
  - JOINT SWELLING [None]
  - WRONG TECHNIQUE IN DRUG USAGE PROCESS [None]
